FAERS Safety Report 15725049 (Version 1)
Quarter: 2018Q4

REPORT INFORMATION
  Report Type: Spontaneous
  Country: CN (occurrence: CN)
  Receive Date: 20181214
  Receipt Date: 20181214
  Transmission Date: 20190205
  Serious: Yes (Death, Other)
  Sender: FDA-Public Use
  Company Number: CN-MYLANLABS-2018M1091217

PATIENT
  Age: 58 Year
  Sex: Female

DRUGS (3)
  1. CISPLATIN. [Suspect]
     Active Substance: CISPLATIN
     Indication: PLEURAL MESOTHELIOMA MALIGNANT
     Dosage: 2 CYCLES IN THE FIRST-LINE CHEMOTHERAPY AND 1 CYCLE IN THE SECOND-LINE CHEMOTHERAPY
     Route: 065
     Dates: start: 201512
  2. PEMETREXED. [Suspect]
     Active Substance: PEMETREXED
     Indication: PLEURAL MESOTHELIOMA MALIGNANT
     Dosage: 2 CYCLES
     Route: 065
     Dates: start: 201512
  3. GEMCITABINE [Suspect]
     Active Substance: GEMCITABINE\GEMCITABINE HYDROCHLORIDE
     Indication: PLEURAL MESOTHELIOMA MALIGNANT
     Dosage: 1 CYCLE
     Route: 065

REACTIONS (2)
  - Drug ineffective [Unknown]
  - Anaemia [Unknown]
